FAERS Safety Report 10083811 (Version 2)
Quarter: 2014Q2

REPORT INFORMATION
  Report Type: Spontaneous
  Country: GB (occurrence: GB)
  Receive Date: 20140417
  Receipt Date: 20140417
  Transmission Date: 20141212
  Serious: Yes (Hospitalization)
  Sender: FDA-Public Use
  Company Number: PHFR2013GB007078

PATIENT
  Age: 42 Year
  Sex: Female

DRUGS (34)
  1. CLOZARIL [Suspect]
     Indication: SCHIZOPHRENIA
     Dosage: UNK
     Route: 048
     Dates: start: 20000210
  2. SULPRIDE [Concomitant]
     Dosage: 200 MG AT 21:00, 400 MG AR 13:00,18:00,21:00
  3. ZOLPIDEM [Concomitant]
     Dosage: 2 DF, UNK
  4. ATORVASTATIN [Concomitant]
     Dosage: 1 DF, UNK
  5. CARBOCISTEINE [Concomitant]
     Dosage: 375 MG,2 AT 10: 30, 2 AT 13:00 AND 02 AT 18:00
  6. COD LIVER [Concomitant]
     Dosage: 1 DF, UNK
  7. DESMOPRESSIN [Concomitant]
     Dosage: 2 DF, AT 13:00
  8. ESCITALOPRAM [Concomitant]
     Dosage: 1 DF, AT 13:00
  9. OMEPRAZOLE [Concomitant]
     Dosage: 1 DF, AT 13:00
  10. EPILIM [Concomitant]
     Dosage: 4 AT 13:00 AND 4 AT 18:00
  11. SYMBICORT [Concomitant]
     Dosage: 3 AT 10:30, 3 AT 13:00 AND 3 AT 21:00
  12. BECLOMETASONE [Concomitant]
     Dosage: 2 AT 10:30 AND 2 AT 21:00
  13. MULTI-VIT [Concomitant]
     Dosage: 1 DF, UNK
  14. TRIHEXYPHENIDYL [Concomitant]
     Dosage: 1 AT 10: 30, 1 AT 13:00 AND 1 AT 21:00
  15. CLOZAPINE [Concomitant]
     Dosage: 100 MD (2 AT 13:00, 3 AT 21:00)
  16. CLOZAPINE [Concomitant]
     Dosage: 25 MG, UNK
  17. CETRIZINE [Concomitant]
     Dosage: 10 MG, UNK
  18. MONTELUKAST [Concomitant]
     Dosage: 10 MG, UNK
  19. PROCYCLIDINE [Concomitant]
     Dosage: 5 MG, UNK
  20. METFORMIN [Concomitant]
     Dosage: 1 AT 10:30 AND 1 AT 18:00
  21. PREDNISOLONE [Concomitant]
     Dosage: 40 MG, UNK
  22. ADCAL//CALCIUM CARBONATE [Concomitant]
     Dosage: D3 ( 1 AT 10: 30 AND 1 AT 21:00)
  23. SALBUTAMOL [Concomitant]
     Dosage: 5 DF, PRN
  24. IPRATROPIUM BROMIDE [Concomitant]
     Dosage: 4 DF, UNK
  25. ALENDRONIC ACID [Concomitant]
     Dosage: 1 DF, UNK
  26. MOVICOL [Concomitant]
     Dosage: 1 AT 10:30 AND 2 AT 18: 00
  27. LIRAGLUTIDE [Concomitant]
     Dosage: 0.6 ML, UNK
  28. CINNARIZINE [Concomitant]
     Dosage: 1 AT 10: 30, 2 AT 13:00 AND 1 AT 18:00
  29. NYSTATIN [Concomitant]
     Dosage: 100/1000ML AS REQUIRED
  30. PHOLCODINE [Concomitant]
     Dosage: 5 ML/10 ML AS REQUIRED
  31. IBUPROFEN [Concomitant]
     Dosage: 400 MG, PRN
  32. CO-AMOXICLAV [Concomitant]
     Dosage: 500/125 TID (PRN)
  33. DOXYCYCLINE [Concomitant]
     Dosage: 100 MG, PRN
  34. MISOPROSTOL [Concomitant]
     Dosage: 200 UG, TID

REACTIONS (9)
  - Asthma [Recovering/Resolving]
  - Malaise [Recovering/Resolving]
  - Lower respiratory tract infection [Recovering/Resolving]
  - Type 2 diabetes mellitus [Recovering/Resolving]
  - C-reactive protein abnormal [Unknown]
  - White blood cell count increased [Unknown]
  - Neutrophil count increased [Unknown]
  - Blood glucose abnormal [Unknown]
  - Platelet count increased [Unknown]
